FAERS Safety Report 5757589-X (Version None)
Quarter: 2008Q2

REPORT INFORMATION
  Report Type: 
  Country: None (occurrence: None)
  Receive Date: 20080603
  Receipt Date: 20080524
  Transmission Date: 20081010
  Serious: Yes (Hospitalization, Other)
  Sender: FDA-Public Use
  Company Number: US-PFIZER INC-2008013993

PATIENT
  Sex: Female
  Weight: 62.6 kg

DRUGS (1)
  1. LIPITOR [Suspect]
     Indication: HYPERLIPIDAEMIA
     Route: 048
     Dates: start: 20071011, end: 20071231

REACTIONS (5)
  - PAIN [None]
  - PANCREATITIS ACUTE [None]
  - PSEUDOCYST [None]
  - UNEVALUABLE EVENT [None]
  - WEIGHT DECREASED [None]
